FAERS Safety Report 6189441-2 (Version None)
Quarter: 2009Q2

REPORT INFORMATION
  Report Type: 
  Country: None (occurrence: None)
  Receive Date: 20090512
  Receipt Date: 20090512
  Transmission Date: 20091009
  Serious: Yes (Hospitalization)
  Sender: FDA-Public Use
  Company Number: None

PATIENT
  Age: 56 Year
  Sex: Female
  Weight: 93 kg

DRUGS (1)
  1. LINEZOLID [Suspect]
     Indication: PNEUMONIA
     Dosage: 600 MG BID PO
     Route: 048
     Dates: start: 20090310, end: 20090310

REACTIONS (5)
  - HYPERHIDROSIS [None]
  - MYDRIASIS [None]
  - NAUSEA [None]
  - TACHYCARDIA [None]
  - VOMITING [None]
